FAERS Safety Report 7658467-1 (Version None)
Quarter: 2011Q3

REPORT INFORMATION
  Report Type: 
  Country: None (occurrence: None)
  Receive Date: 20110805
  Receipt Date: 20110727
  Transmission Date: 20111222
  Serious: Yes (Other)
  Sender: FDA-Public Use
  Company Number: CA-JNJFOC-20110401464

PATIENT
  Sex: Female

DRUGS (2)
  1. REMICADE [Suspect]
     Dosage: PATIENT LAST DOSE WAS IN FEB-2011 AND SHE IS DUE FOR HER NEXT DOSE 30-MAY-2011 AFTER HER SURGERY
     Route: 042
     Dates: start: 20100501
  2. REMICADE [Suspect]
     Indication: HIDRADENITIS
     Dosage: PATIENT LAST DOSE WAS IN FEB-2011 AND SHE IS DUE FOR HER NEXT DOSE 30-MAY-2011 AFTER HER SURGERY
     Route: 042
     Dates: start: 20110201, end: 20110201

REACTIONS (1)
  - KELOID SCAR [None]
